FAERS Safety Report 6755919-3 (Version None)
Quarter: 2010Q2

REPORT INFORMATION
  Report Type: 
  Country: None (occurrence: None)
  Receive Date: 20100604
  Receipt Date: 20100525
  Transmission Date: 20101027
  Serious: Yes (Hospitalization)
  Sender: FDA-Public Use
  Company Number: BR-AMGEN-QUU415867

PATIENT
  Age: 46 Year
  Sex: Female
  Weight: 98 kg

DRUGS (1)
  1. ENBREL [Suspect]
     Indication: DRUG USE FOR UNKNOWN INDICATION
     Route: 058
     Dates: start: 20090401, end: 20091201

REACTIONS (3)
  - PATHOGEN RESISTANCE [None]
  - URINARY TRACT INFECTION BACTERIAL [None]
  - VASCULITIS [None]
